FAERS Safety Report 8438358-9 (Version None)
Quarter: 2012Q2

REPORT INFORMATION
  Report Type: 
  Country: None (occurrence: None)
  Receive Date: 20120614
  Receipt Date: 20120608
  Transmission Date: 20120825
  Serious: Yes (Hospitalization)
  Sender: FDA-Public Use
  Company Number: US-MERCK-1206USA01400

PATIENT
  Age: 65 Year
  Sex: Male

DRUGS (4)
  1. METFORMIN [Concomitant]
     Route: 065
  2. AMARYL [Concomitant]
     Route: 065
  3. TRICOR [Concomitant]
     Indication: BLOOD TRIGLYCERIDES INCREASED
     Route: 065
  4. JANUVIA [Suspect]
     Indication: TYPE 2 DIABETES MELLITUS
     Route: 048
     Dates: start: 20100101

REACTIONS (3)
  - PANCREATITIS [None]
  - ADVERSE EVENT [None]
  - BLOOD TRIGLYCERIDES INCREASED [None]
